FAERS Safety Report 7457340-1 (Version None)
Quarter: 2011Q2

REPORT INFORMATION
  Report Type: 
  Country: None (occurrence: None)
  Receive Date: 20110504
  Receipt Date: 20110314
  Transmission Date: 20111010
  Serious: No
  Sender: FDA-Public Use
  Company Number: US-KINGPHARMUSA00001-K201100292

PATIENT
  Sex: Male

DRUGS (5)
  1. AVINZA [Suspect]
  2. AVINZA [Suspect]
     Indication: ABDOMINAL PAIN UPPER
     Dosage: UNK
     Dates: start: 20110312, end: 20110312
  3. ATIVAN [Suspect]
  4. ZYVOX [Suspect]
     Indication: URINARY TRACT INFECTION
     Dosage: UNK
     Dates: start: 20110312, end: 20110312
  5. ATIVAN [Suspect]
     Indication: ABDOMINAL PAIN UPPER
     Dosage: UNK
     Dates: start: 20110312, end: 20110312

REACTIONS (5)
  - DYSPNOEA [None]
  - HYPOAESTHESIA [None]
  - MUSCLE TWITCHING [None]
  - DEPRESSED LEVEL OF CONSCIOUSNESS [None]
  - DYSARTHRIA [None]
